FAERS Safety Report 5360664-5 (Version None)
Quarter: 2007Q2

REPORT INFORMATION
  Report Type: 
  Country: None (occurrence: None)
  Receive Date: 20070618
  Receipt Date: 20070608
  Transmission Date: 20071010
  Serious: Yes (Other)
  Sender: FDA-Public Use
  Company Number: JP-MERCK-0704USA05002

PATIENT
  Age: 52 Year
  Sex: Female

DRUGS (3)
  1. TRUSOPT [Suspect]
     Indication: GLAUCOMA
     Route: 047
     Dates: start: 20070301, end: 20070401
  2. AZOPT [Suspect]
     Indication: GLAUCOMA
     Route: 047
     Dates: start: 20070201, end: 20070401
  3. XALATAN [Concomitant]
     Indication: GLAUCOMA
     Route: 047

REACTIONS (1)
  - CORNEAL DISORDER [None]
